FAERS Safety Report 9258572 (Version 1)
Quarter: 2013Q1

REPORT INFORMATION
  Report Type: Spontaneous
  Country: US (occurrence: None)
  Receive Date: 20121212
  Receipt Date: 20121212
  Transmission Date: 20140127
  Serious: No
  Sender: FDA-Public Use
  Company Number: 1209USA007878

PATIENT
  Age: 64 Year
  Sex: Male

DRUGS (6)
  1. VICTRELIS [Suspect]
     Indication: HEPATITIS C
     Dosage: 800MG, TID, ORAL
     Route: 048
     Dates: start: 201208, end: 2012
  2. PEGASYS [Suspect]
     Indication: HEPATITIS C
     Dosage: UNK
     Dates: start: 201208, end: 2012
  3. NORVASC (AMLODIPINE BESYLATE) [Concomitant]
  4. PROZAC (FLUOXETINE HYDROCHLORIDE) [Concomitant]
  5. RIBAPAK (RIBAVIRIN) [Suspect]
     Dosage: UNK
     Dates: start: 201208, end: 2012
  6. RANITIDINE (RANITIDINE) [Concomitant]

REACTIONS (7)
  - Mood altered [None]
  - Anxiety [None]
  - Impatience [None]
  - Irritability [None]
  - Mood swings [None]
  - Dysgeusia [None]
  - Product quality issue [None]
